FAERS Safety Report 14063168 (Version 2)
Quarter: 2017Q4

REPORT INFORMATION
  Report Type: Spontaneous
  Country: US (occurrence: CN)
  Receive Date: 20171009
  Receipt Date: 20171011
  Transmission Date: 20180321
  Serious: Yes (Hospitalization, Disabling, Other)
  Sender: FDA-Public Use
  Company Number: US-009507513-1710CHN002525

PATIENT
  Age: 75 Year
  Sex: Male

DRUGS (3)
  1. CYANOCOBALAMIN. [Concomitant]
     Active Substance: CYANOCOBALAMIN
  2. THIAMINE. [Concomitant]
     Active Substance: THIAMINE
  3. PEMBROLIZUMAB. [Suspect]
     Active Substance: PEMBROLIZUMAB
     Indication: RENAL CANCER
     Dosage: 150 MG, Q3W
     Route: 042
     Dates: start: 20170810, end: 201709

REACTIONS (8)
  - Diplopia [Not Recovered/Not Resolved]
  - Influenza [Not Recovered/Not Resolved]
  - Neuropathy peripheral [Unknown]
  - Product use in unapproved indication [Unknown]
  - Gait inability [Not Recovered/Not Resolved]
  - Headache [Not Recovered/Not Resolved]
  - Weight decreased [Not Recovered/Not Resolved]
  - Head discomfort [Unknown]

NARRATIVE: CASE EVENT DATE: 20170810
